FAERS Safety Report 6143771-9 (Version None)
Quarter: 2009Q2

REPORT INFORMATION
  Report Type: 
  Country: None (occurrence: None)
  Receive Date: 20090403
  Receipt Date: 20090325
  Transmission Date: 20091009
  Serious: Yes (Other)
  Sender: FDA-Public Use
  Company Number: PHHY2008CN29612

PATIENT
  Age: 26 Year
  Sex: Female

DRUGS (1)
  1. SEBIVO [Suspect]
     Dosage: 600 MG/DAY
     Route: 048
     Dates: start: 20081005, end: 20081129

REACTIONS (2)
  - DRUG EXPOSURE DURING PREGNANCY [None]
  - PREMATURE LABOUR [None]
